FAERS Safety Report 10225102 (Version 3)
Quarter: 2014Q2

REPORT INFORMATION
  Report Type: Spontaneous
  Country: FR (occurrence: FR)
  Receive Date: 20140609
  Receipt Date: 20140616
  Transmission Date: 20141212
  Serious: Yes (Other)
  Sender: FDA-Public Use
  Company Number: FR-GILEAD-2014-0103460

PATIENT
  Age: 54 Year
  Sex: Male
  Weight: 129 kg

DRUGS (3)
  1. SOVALDI [Suspect]
     Indication: HEPATITIS C
     Dosage: 400 MG, UNK
     Route: 048
     Dates: start: 20140401
  2. DACLATASVIR [Suspect]
     Indication: HEPATITIS C
     Dosage: 60 MG, UNK
     Route: 048
     Dates: start: 20140401
  3. PROPRANOLOL                        /00030002/ [Concomitant]
     Indication: VARICES OESOPHAGEAL
     Dosage: 160 LP
     Route: 048
     Dates: start: 200801

REACTIONS (2)
  - Lymphangitis [Recovered/Resolved]
  - Pyrexia [Recovered/Resolved]
